FAERS Safety Report 9441358 (Version 1)
Quarter: 2013Q3

REPORT INFORMATION
  Report Type: Spontaneous
  Country: US (occurrence: US)
  Receive Date: 20130805
  Receipt Date: 20130805
  Transmission Date: 20140515
  Serious: Yes (Death, Hospitalization, Disabling, Other)
  Sender: FDA-Public Use
  Company Number: US-TEVA-423628USA

PATIENT
  Sex: Female

DRUGS (3)
  1. PROPOXYPHENE NAPSYLATE AND ACETAMINOPHEN [Suspect]
     Indication: PAIN
  2. DARVOCET [Suspect]
     Indication: PAIN
  3. DARVON [Suspect]
     Indication: PAIN

REACTIONS (4)
  - Cardiovascular disorder [Unknown]
  - Nervous system disorder [Unknown]
  - Movement disorder [Unknown]
  - Death [Fatal]
